FAERS Safety Report 16397301 (Version 1)
Quarter: 2019Q2

REPORT INFORMATION
  Report Type: Spontaneous
  Country: US (occurrence: US)
  Receive Date: 20190606
  Receipt Date: 20190606
  Transmission Date: 20190711
  Serious: Yes (Hospitalization)
  Sender: FDA-Public Use
  Company Number: US-BIOGEN-2018BI00672844

PATIENT
  Age: 54 Year
  Sex: Female

DRUGS (1)
  1. AVONEX [Suspect]
     Active Substance: INTERFERON BETA-1A
     Indication: MULTIPLE SCLEROSIS
     Dates: start: 19960801

REACTIONS (14)
  - Animal bite [Unknown]
  - Memory impairment [Unknown]
  - Device malfunction [Unknown]
  - Influenza [Unknown]
  - Mental disorder [Unknown]
  - Tooth disorder [Unknown]
  - Stress [Unknown]
  - Multiple sclerosis [Unknown]
  - Peroneal nerve palsy [Unknown]
  - Dysphonia [Unknown]
  - Feeling abnormal [Unknown]
  - Balance disorder [Unknown]
  - Ankle fracture [Not Recovered/Not Resolved]
  - Fall [Recovered/Resolved]

NARRATIVE: CASE EVENT DATE: 20190111
